FAERS Safety Report 4760442-1 (Version None)
Quarter: 2005Q3

REPORT INFORMATION
  Report Type: 
  Country: None (occurrence: None)
  Receive Date: 20050902
  Receipt Date: 20011128
  Transmission Date: 20060218
  Serious: Yes (Hospitalization)
  Sender: FDA-Public Use
  Company Number: US-BRISTOL-MYERS SQUIBB COMPANY-12199543

PATIENT
  Age: 26 Year
  Sex: Male

DRUGS (8)
  1. CETUXIMAB [Suspect]
     Indication: NON-SMALL CELL LUNG CANCER
     Route: 042
     Dates: start: 20011123, end: 20011123
  2. CARBOPLATIN [Suspect]
     Indication: NON-SMALL CELL LUNG CANCER
     Route: 042
     Dates: start: 20011115, end: 20011115
  3. GEMCITABINE [Suspect]
     Indication: NON-SMALL CELL LUNG CANCER
     Route: 042
     Dates: start: 20011115, end: 20011115
  4. ATIVAN [Concomitant]
     Dates: start: 20010901
  5. HYCODAN [Concomitant]
     Dates: start: 20010901
  6. COMPAZINE [Concomitant]
     Dates: start: 20011101
  7. HYDROCODONE BITARTRATE + ACETAMINOPHEN [Concomitant]
     Dates: start: 20010901
  8. OXYGEN [Concomitant]
     Indication: LUNG NEOPLASM MALIGNANT

REACTIONS (1)
  - PNEUMONIA [None]
